FAERS Safety Report 20340218 (Version 1)
Quarter: 2022Q1

REPORT INFORMATION
  Report Type: Spontaneous
  Country: GB (occurrence: None)
  Receive Date: 20220117
  Receipt Date: 20220117
  Transmission Date: 20220424
  Serious: Yes (Other)
  Sender: FDA-Public Use
  Company Number: GB-MICRO LABS LIMITED-ML2022-00008

PATIENT
  Age: 35 Year
  Sex: Male

DRUGS (5)
  1. ATORVASTATIN [Suspect]
     Active Substance: ATORVASTATIN
  2. METFORMIN [Suspect]
     Active Substance: METFORMIN HYDROCHLORIDE
  3. PERINDOPRIL [Suspect]
     Active Substance: PERINDOPRIL
  4. SERTRALINE [Concomitant]
     Active Substance: SERTRALINE HYDROCHLORIDE
     Indication: Schizoaffective disorder
  5. OLANZAPINE [Concomitant]
     Active Substance: OLANZAPINE
     Indication: Schizoaffective disorder

REACTIONS (3)
  - Erectile dysfunction [Unknown]
  - Treatment noncompliance [Unknown]
  - Myalgia [Unknown]
